FAERS Safety Report 15824958 (Version 1)
Quarter: 2019Q1

REPORT INFORMATION
  Report Type: Spontaneous
  Country: US (occurrence: US)
  Receive Date: 20190114
  Receipt Date: 20190114
  Transmission Date: 20190417
  Serious: Yes (Life-Threatening, Hospitalization)
  Sender: FDA-Public Use
  Company Number: None

PATIENT
  Age: 53 Year
  Sex: Male
  Weight: 84.15 kg

DRUGS (1)
  1. VIVITROL [Suspect]
     Active Substance: NALTREXONE
     Indication: DRUG DEPENDENCE
     Dosage: 1 INJECTION INTRAMUSCULAR EVERY 28 DAYS
     Route: 030
     Dates: start: 20180201, end: 20190114

REACTIONS (1)
  - Overdose [None]

NARRATIVE: CASE EVENT DATE: 20180820
